FAERS Safety Report 5815551-2 (Version None)
Quarter: 2008Q3

REPORT INFORMATION
  Report Type: 
  Country: None (occurrence: None)
  Receive Date: 20080716
  Receipt Date: 20080708
  Transmission Date: 20090109
  Serious: Yes (Hospitalization)
  Sender: FDA-Public Use
  Company Number: 029855

PATIENT
  Age: 54 Year
  Sex: Female
  Weight: 117.9 kg

DRUGS (26)
  1. WARFARIN SODIUM [Suspect]
     Indication: THROMBOSIS PROPHYLAXIS
     Dosage: 10 MG, 3/WEEK, ORAL, 7.5 MG, 3/WEEK, ORAL
     Route: 048
     Dates: start: 20080529, end: 20080530
  2. WARFARIN SODIUM [Suspect]
     Indication: THROMBOSIS PROPHYLAXIS
     Dosage: 10 MG, 3/WEEK, ORAL, 7.5 MG, 3/WEEK, ORAL
     Route: 048
     Dates: start: 20080531
  3. WARFARIN SODIUM [Suspect]
     Indication: THROMBOSIS PROPHYLAXIS
     Dosage: 10 MG, 3/WEEK, ORAL, 7.5 MG, 3/WEEK, ORAL
     Route: 048
     Dates: start: 20080601
  4. BLINDED(BLINDED) [Suspect]
     Indication: PROPHYLAXIS OF NAUSEA AND VOMITING
     Dosage: 4 DF, ONCE, ORAL
     Route: 048
     Dates: start: 20080528, end: 20080528
  5. BLINDED(BLINDED) [Suspect]
     Indication: PROPHYLAXIS OF NAUSEA AND VOMITING
     Dosage: 2 ML, ONCE INTRAVENOUS
     Route: 042
     Dates: start: 20080528, end: 20080528
  6. ZOLOFT [Concomitant]
  7. LOVENOX [Concomitant]
  8. ADVIL [Concomitant]
  9. ESOMEPRAZOLE MAGNESIUM [Concomitant]
  10. METOPROLOL TARTRATE [Concomitant]
  11. ENOXAPARIN SODIUM [Concomitant]
  12. NICOTINE [Concomitant]
  13. LACTATED RINGER'S [Concomitant]
  14. DOCUSATE (DOCUSATE) [Concomitant]
  15. OXYCODONE AND ACETAMINOPHEN [Concomitant]
  16. SIMETHICONE (SIMETICONE) [Concomitant]
  17. DEXTROSE [Concomitant]
  18. LACTATED RINGER'S [Concomitant]
  19. HYDROMORPHONE HCL [Concomitant]
  20. INSULIN SLIDING SCALE [Concomitant]
  21. SODIUM CHLORIDE [Concomitant]
  22. POTASSIUM CHLORIDE [Concomitant]
  23. CIPRO [Concomitant]
  24. ADVIL [Concomitant]
  25. MILK OF MAGNESIA TAB [Concomitant]
  26. PERCOCET [Concomitant]

REACTIONS (20)
  - ABDOMINAL PAIN [None]
  - ACUTE RESPIRATORY DISTRESS SYNDROME [None]
  - ATELECTASIS [None]
  - CHEST PAIN [None]
  - DYSPNOEA [None]
  - ELECTROCARDIOGRAM T WAVE ABNORMAL [None]
  - EMPHYSEMA [None]
  - HAEMOGLOBIN DECREASED [None]
  - HAEMORRHAGIC ASCITES [None]
  - HYPERGLYCAEMIA [None]
  - HYPOTENSION [None]
  - NAUSEA [None]
  - OPERATIVE HAEMORRHAGE [None]
  - OXYGEN SATURATION DECREASED [None]
  - PERITONEAL HAEMORRHAGE [None]
  - PLEURAL EFFUSION [None]
  - POST PROCEDURAL COMPLICATION [None]
  - SINUS TACHYCARDIA [None]
  - STRESS [None]
  - VISION BLURRED [None]
